FAERS Safety Report 9306124 (Version 3)
Quarter: 2014Q2

REPORT INFORMATION
  Report Type: Spontaneous
  Country: IT (occurrence: IT)
  Receive Date: 20130523
  Receipt Date: 20140527
  Transmission Date: 20141212
  Serious: Yes (Hospitalization)
  Sender: FDA-Public Use
  Company Number: IT-SANOFI-AVENTIS-2013SA049086

PATIENT
  Age: 69 Year
  Sex: Male

DRUGS (3)
  1. PLAVIX [Suspect]
     Indication: TRANSIENT ISCHAEMIC ATTACK
     Route: 048
     Dates: start: 20110129, end: 20130129
  2. TRIATEC [Concomitant]
     Indication: HYPERTENSION
     Dosage: 1 POSOLOGICAL UNIT DOSE:1 UNIT(S)
     Route: 048
  3. NORVASC [Concomitant]
     Indication: HYPERTENSION
     Dosage: 1 POSOLOGICAL UNIT DOSE:1 UNIT(S)
     Route: 048

REACTIONS (3)
  - Urinary retention [Recovering/Resolving]
  - Haematuria [Recovered/Resolved]
  - Anaemia [Recovering/Resolving]
